FAERS Safety Report 9264170 (Version 1)
Quarter: 2013Q2

REPORT INFORMATION
  Report Type: Spontaneous
  Country: DE (occurrence: DE)
  Receive Date: 20130430
  Receipt Date: 20130430
  Transmission Date: 20140414
  Serious: Yes (Life-Threatening)
  Sender: FDA-Public Use
  Company Number: DE-PFIZER INC-2013134880

PATIENT
  Age: 76 Year
  Sex: Male

DRUGS (8)
  1. RAMIPRIL [Suspect]
     Dosage: 2.5 MG, 1X/DAY
     Route: 048
     Dates: end: 20130225
  2. SIMVASTATIN [Suspect]
     Dosage: 40 MG, 1X/DAY
     Route: 048
     Dates: start: 20130203
  3. BRILIQUE [Suspect]
     Dosage: 180 MG, 1X/DAY
     Route: 048
     Dates: start: 20130203, end: 20130225
  4. TORASEMIDE [Suspect]
     Dosage: 5 MG, UNK
     Route: 048
     Dates: start: 20130203
  5. ALLOPURINOL [Suspect]
     Dosage: 300 MG, 1X/DAY
     Route: 048
     Dates: start: 20130203
  6. PANTOZOL [Concomitant]
     Dosage: UNK
     Dates: start: 20130203
  7. BISOPROLOL [Concomitant]
     Dosage: UNK
     Dates: start: 20130203
  8. ACETYLSALICYLIC ACID [Concomitant]
     Dosage: UNK
     Dates: start: 20130203

REACTIONS (1)
  - Pancreatitis [Recovered/Resolved]
